FAERS Safety Report 19438831 (Version 4)
Quarter: 2021Q4

REPORT INFORMATION
  Report Type: Report from Study
  Country: US (occurrence: US)
  Receive Date: 20210618
  Receipt Date: 20211230
  Transmission Date: 20220303
  Serious: Yes (Other)
  Sender: FDA-Public Use
  Company Number: US-SEATTLE GENETICS-2021SGN03045

PATIENT
  Sex: Female

DRUGS (4)
  1. TUCATINIB [Suspect]
     Active Substance: TUCATINIB
     Indication: Breast cancer
     Dosage: UNK
     Route: 065
  2. TUCATINIB [Suspect]
     Active Substance: TUCATINIB
     Dosage: UNK
     Route: 065
  3. TUCATINIB [Suspect]
     Active Substance: TUCATINIB
     Dosage: UNK
     Route: 065
  4. TUCATINIB [Suspect]
     Active Substance: TUCATINIB
     Dosage: UNK
     Route: 065

REACTIONS (9)
  - Central nervous system lesion [Unknown]
  - Constipation [Unknown]
  - Abdominal distension [Unknown]
  - Product dose omission issue [Unknown]
  - Memory impairment [Unknown]
  - Radiotherapy [Unknown]
  - Headache [Unknown]
  - Fatigue [Unknown]
  - Diarrhoea [Recovering/Resolving]
